FAERS Safety Report 8501839-3 (Version None)
Quarter: 2012Q2

REPORT INFORMATION
  Report Type: 
  Country: None (occurrence: None)
  Receive Date: 20120405
  Receipt Date: 20100823
  Transmission Date: 20120825
  Serious: Yes (Disabling)
  Sender: FDA-Public Use
  Company Number: PHHY2010US49072

PATIENT
  Age: 68 Year
  Sex: Female
  Weight: 73.5 kg

DRUGS (2)
  1. ULTRAM [Concomitant]
  2. RECLAST [Suspect]
     Indication: OSTEOPOROSIS
     Dosage: 5 MG, IV INFUSION
     Route: 042
     Dates: start: 20100723

REACTIONS (6)
  - PAIN IN EXTREMITY [None]
  - ARTHRALGIA [None]
  - BONE PAIN [None]
  - EYE PAIN [None]
  - GAIT DISTURBANCE [None]
  - PAIN [None]
